FAERS Safety Report 20373445 (Version 5)
Quarter: 2022Q4

REPORT INFORMATION
  Report Type: Report from Study
  Country: BR (occurrence: BR)
  Receive Date: 20220125
  Receipt Date: 20221224
  Transmission Date: 20230113
  Serious: Yes (Other)
  Sender: FDA-Public Use
  Company Number: BR-TAKEDA-BR202003276

PATIENT
  Age: 5 Year
  Sex: Male
  Weight: 23 kg

DRUGS (19)
  1. IDURSULFASE [Suspect]
     Active Substance: IDURSULFASE
     Indication: Mucopolysaccharidosis II
     Dosage: UNK
     Route: 065
     Dates: start: 201909
  2. IDURSULFASE [Suspect]
     Active Substance: IDURSULFASE
     Dosage: UNK
     Route: 042
     Dates: start: 201808
  3. IDURSULFASE [Suspect]
     Active Substance: IDURSULFASE
     Dosage: 4.75 MILLIGRAM
     Route: 065
  4. IDURSULFASE [Suspect]
     Active Substance: IDURSULFASE
     Dosage: 1.5 DOSAGE FORM, 1/WEEK
     Route: 042
     Dates: start: 201808
  5. IDURSULFASE [Suspect]
     Active Substance: IDURSULFASE
     Dosage: 4.87 MILLILITER, 1/WEEK
     Route: 065
  6. IDURSULFASE [Suspect]
     Active Substance: IDURSULFASE
     Dosage: UNK, 1/WEEK
     Route: 065
     Dates: start: 201908
  7. IDURSULFASE [Suspect]
     Active Substance: IDURSULFASE
     Dosage: UNK
     Route: 065
     Dates: start: 20200807
  8. IDURSULFASE [Suspect]
     Active Substance: IDURSULFASE
     Dosage: 2 DOSAGE FORM, 1/WEEK
     Route: 042
     Dates: start: 201910
  9. IDURSULFASE [Suspect]
     Active Substance: IDURSULFASE
     Dosage: 1 DOSAGE FORM
     Route: 042
  10. IDURSULFASE [Suspect]
     Active Substance: IDURSULFASE
     Dosage: 1 DOSAGE FORM
     Route: 042
  11. IDURSULFASE [Suspect]
     Active Substance: IDURSULFASE
     Dosage: 1 DOSAGE FORM
     Route: 042
  12. IDURSULFASE [Suspect]
     Active Substance: IDURSULFASE
     Dosage: 1 DOSAGE FORM, 1/WEEK
     Route: 042
  13. IDURSULFASE [Suspect]
     Active Substance: IDURSULFASE
     Dosage: UNK
     Route: 042
  14. IDURSULFASE [Suspect]
     Active Substance: IDURSULFASE
     Dosage: 2 DOSAGE FORM
     Route: 042
     Dates: start: 201908
  15. IDURSULFASE [Suspect]
     Active Substance: IDURSULFASE
     Dosage: 3 DOSAGE FORM
     Route: 042
     Dates: start: 201909
  16. MONTELUCASTE ACTAVIS [Concomitant]
     Dosage: 4 MILLIGRAM
     Route: 048
  17. BENADRYL [Concomitant]
     Active Substance: DIPHENHYDRAMINE HYDROCHLORIDE
     Dosage: 20 MILLIGRAM
     Route: 042
  18. SOLU-MEDROL [Concomitant]
     Active Substance: METHYLPREDNISOLONE SODIUM SUCCINATE
     Indication: Drug hypersensitivity
     Dosage: 20 MILLIGRAM
     Route: 042
  19. ALLEGRA [Concomitant]
     Active Substance: FEXOFENADINE HYDROCHLORIDE
     Dosage: 30 MILLIGRAM
     Route: 048

REACTIONS (32)
  - Asphyxia [Unknown]
  - Rhinitis [Unknown]
  - Irritability [Unknown]
  - Swelling face [Unknown]
  - Localised oedema [Unknown]
  - Neck mass [Recovered/Resolved]
  - Influenza [Recovered/Resolved]
  - Drug hypersensitivity [Recovered/Resolved]
  - Oedema [Recovered/Resolved]
  - Peripheral swelling [Unknown]
  - Nasopharyngitis [Unknown]
  - Agitation [Unknown]
  - Lung disorder [Unknown]
  - Productive cough [Recovered/Resolved]
  - Swelling [Unknown]
  - Adverse drug reaction [Recovered/Resolved]
  - Hypersensitivity [Recovered/Resolved]
  - Bronchospasm [Unknown]
  - Cough [Recovered/Resolved]
  - Infusion related reaction [Unknown]
  - Erythema [Recovered/Resolved]
  - Flushing [Recovered/Resolved]
  - Oedema peripheral [Unknown]
  - Aggression [Unknown]
  - Illness [Recovering/Resolving]
  - Secretion discharge [Recovering/Resolving]
  - Bronchitis [Unknown]
  - Feeling abnormal [Unknown]
  - Panic disorder [Unknown]
  - Inappropriate schedule of product administration [Unknown]
  - Product dose omission issue [Unknown]
  - Incorrect dose administered [Unknown]

NARRATIVE: CASE EVENT DATE: 20200410
